FAERS Safety Report 14187156 (Version 24)
Quarter: 2020Q3

REPORT INFORMATION
  Report Type: Report from Study
  Country: None (occurrence: JP)
  Receive Date: 20171114
  Receipt Date: 20200918
  Transmission Date: 20201102
  Serious: Yes (Life-Threatening, Hospitalization)
  Sender: FDA-Public Use
  Company Number: JP-ABBVIE-17K-087-2112255-00

PATIENT
  Age: 75 Year
  Sex: Female

DRUGS (15)
  1. DUODOPA [Suspect]
     Active Substance: CARBIDOPA\LEVODOPA
     Dosage: MD: 5.5 ML?CD: 3.1 ML / HR X 16 HRS?ED: 1.0 ML / UNIT X 4
     Route: 050
     Dates: start: 20170831, end: 20181211
  2. FLUDROCORTISONE ACETATE. [Concomitant]
     Active Substance: FLUDROCORTISONE ACETATE
     Indication: PRODUCT USED FOR UNKNOWN INDICATION
     Route: 048
  3. DUODOPA [Suspect]
     Active Substance: CARBIDOPA\LEVODOPA
     Indication: PARKINSON^S DISEASE
     Dosage: MD: 11 ML, CD: 3.4 ML/HR, ED: 1.5 ML/UNIT
     Route: 050
     Dates: start: 20170705
  4. ROTIGOTINE [Concomitant]
     Active Substance: ROTIGOTINE
     Indication: PRODUCT USED FOR UNKNOWN INDICATION
     Route: 062
  5. MIDODRINE HYDROCHLORIDE. [Concomitant]
     Active Substance: MIDODRINE HYDROCHLORIDE
     Indication: PRODUCT USED FOR UNKNOWN INDICATION
     Route: 048
  6. DOMPERIDONE [Concomitant]
     Active Substance: DOMPERIDONE
     Indication: PRODUCT USED FOR UNKNOWN INDICATION
     Route: 048
  7. DUODOPA [Suspect]
     Active Substance: CARBIDOPA\LEVODOPA
     Dosage: MD: 13 ML?CD: 2.8 ML / HR X 16 HRS?ED: 1.0 ML / UNIT X 1
     Route: 050
     Dates: start: 20170706, end: 20170706
  8. IMIDAFENACIN [Concomitant]
     Active Substance: IMIDAFENACIN
     Indication: PRODUCT USED FOR UNKNOWN INDICATION
     Route: 048
  9. DUODOPA [Suspect]
     Active Substance: CARBIDOPA\LEVODOPA
     Dosage: MD: 8 ML?CD: 3.8 ML / HR X 16 HRS?ED: 1.0 ML / UNIT X 1
     Route: 050
     Dates: start: 20170726, end: 20170727
  10. DUODOPA [Suspect]
     Active Substance: CARBIDOPA\LEVODOPA
     Dosage: MD: 8 ML?CD: 3.1 ML / HR X 16 HRS?ED: 1.0 ML / UNIT X 1
     Route: 050
     Dates: start: 20170707, end: 20170708
  11. DUODOPA [Suspect]
     Active Substance: CARBIDOPA\LEVODOPA
     Dosage: MD: 5.5 ML?CD: 3.1 ML / HR X 16 HRS?ED: 1.0 ML / UNIT X 1
     Route: 050
     Dates: start: 20181212
  12. LEVODOPA/BENSERAZIDE HYDROCHLORIDE [Concomitant]
     Active Substance: BENSERAZIDE HYDROCHLORIDE\LEVODOPA
     Indication: PRODUCT USED FOR UNKNOWN INDICATION
  13. DUODOPA [Suspect]
     Active Substance: CARBIDOPA\LEVODOPA
     Dosage: MD: 8 ML?CD: 3.8 ML / HR X 16 HRS
     Route: 050
     Dates: start: 20170709, end: 20170725
  14. DUODOPA [Suspect]
     Active Substance: CARBIDOPA\LEVODOPA
     Dosage: MD: 11 ML?CD: 3.8 ML / HR X 16 HRS?ED: 1.0 ML / UNIT X 3
     Route: 050
     Dates: start: 20170728, end: 20170830
  15. DROXIDOPA [Concomitant]
     Active Substance: DROXIDOPA
     Indication: PRODUCT USED FOR UNKNOWN INDICATION
     Route: 048

REACTIONS (12)
  - Dyskinesia [Recovered/Resolved]
  - Stoma site inflammation [Unknown]
  - Drug ineffective [Unknown]
  - Product administration error [Unknown]
  - Cardiac failure acute [Recovered/Resolved]
  - Device dislocation [Unknown]
  - Cardiac failure [Unknown]
  - Arthralgia [Unknown]
  - Dyskinesia [Unknown]
  - Product storage error [Unknown]
  - Stoma site hypergranulation [Unknown]
  - Device occlusion [Unknown]

NARRATIVE: CASE EVENT DATE: 2017
